FAERS Safety Report 5078292-8 (Version None)
Quarter: 2006Q3

REPORT INFORMATION
  Report Type: 
  Country: None (occurrence: None)
  Receive Date: 20060720
  Receipt Date: 20060614
  Transmission Date: 20061208
  Serious: Yes (Other)
  Sender: FDA-Public Use
  Company Number: HQWYE271119JUN06

PATIENT
  Age: 48 Year
  Sex: Female
  Weight: 86.26 kg

DRUGS (4)
  1. ADVIL PM [Suspect]
     Indication: ARTHRALGIA
     Dosage: ONE CAPLET ONE TIME, ORAL
     Route: 048
     Dates: start: 20060612, end: 20060612
  2. ADVIL PM [Suspect]
     Indication: INSOMNIA
     Dosage: ONE CAPLET ONE TIME, ORAL
     Route: 048
     Dates: start: 20060612, end: 20060612
  3. ESTROGENIC SUBSTANCE CAP [Concomitant]
  4. UNSPECIFIED VITAMINS (UNSPECIFIED VITAMINS) [Concomitant]

REACTIONS (1)
  - DRUG EFFECT DECREASED [None]
